FAERS Safety Report 14770313 (Version 1)
Quarter: 2018Q2

REPORT INFORMATION
  Report Type: Spontaneous
  Country: CA (occurrence: CA)
  Receive Date: 20180417
  Receipt Date: 20180417
  Transmission Date: 20180711
  Serious: Yes (Other)
  Sender: FDA-Public Use
  Company Number: CA-TEVA-2018-CA-882611

PATIENT
  Age: 4 Year
  Sex: Male

DRUGS (6)
  1. CYCLOPHOSPHAMIDE. [Suspect]
     Active Substance: CYCLOPHOSPHAMIDE
     Route: 065
  2. GANCICLOVIR. [Suspect]
     Active Substance: GANCICLOVIR
     Route: 042
  3. BUSULFAN. [Suspect]
     Active Substance: BUSULFAN
     Route: 065
  4. ANTI-THYMOCYTE GLOBULIN [Suspect]
     Active Substance: THYMOCYTE IMMUNE GLOBULIN NOS
     Indication: PROPHYLAXIS AGAINST GRAFT VERSUS HOST DISEASE
     Route: 065
  5. METHYLPREDNISOLONE. [Suspect]
     Active Substance: METHYLPREDNISOLONE
     Indication: PROPHYLAXIS AGAINST GRAFT VERSUS HOST DISEASE
     Route: 065
  6. CYCLOSPORINE. [Suspect]
     Active Substance: CYCLOSPORINE
     Indication: PROPHYLAXIS AGAINST GRAFT VERSUS HOST DISEASE
     Dosage: 10 MG/KG/DAY; DECREASED TO 5 MG/KG/DAY
     Route: 065

REACTIONS (4)
  - Treatment failure [Recovered/Resolved]
  - Cytomegalovirus infection [Recovered/Resolved]
  - Pathogen resistance [Recovered/Resolved]
  - Condition aggravated [Recovered/Resolved]
